FAERS Safety Report 20761279 (Version 1)
Quarter: 2022Q2

REPORT INFORMATION
  Report Type: Spontaneous
  Country: US (occurrence: US)
  Receive Date: 20220428
  Receipt Date: 20220428
  Transmission Date: 20220720
  Serious: Yes (Hospitalization, Other)
  Sender: FDA-Public Use
  Company Number: US-ALEMBIC PHARMACUETICALS LIMITED-2022SCAL000164

PATIENT

DRUGS (3)
  1. DOXYCYCLINE [Suspect]
     Active Substance: DOXYCYCLINE
     Indication: Dermatitis
     Dosage: UNK
     Route: 065
     Dates: start: 2017
  2. DOXYCYCLINE [Suspect]
     Active Substance: DOXYCYCLINE
     Indication: Lymphadenopathy
     Dosage: UNK
     Route: 065
     Dates: start: 2020
  3. DOXYCYCLINE [Suspect]
     Active Substance: DOXYCYCLINE
     Indication: Pyrexia

REACTIONS (12)
  - Pharyngitis [Unknown]
  - Pyrexia [Unknown]
  - Lymphadenopathy [Unknown]
  - Tonsillar hypertrophy [Unknown]
  - Rash [Recovered/Resolved]
  - Aphthous ulcer [Unknown]
  - Hypotension [Unknown]
  - Leukopenia [Unknown]
  - Anaemia [Unknown]
  - Arthralgia [Unknown]
  - Malaise [Unknown]
  - Neutropenia [Unknown]

NARRATIVE: CASE EVENT DATE: 20170101
